FAERS Safety Report 8163419-1 (Version None)
Quarter: 2012Q1

REPORT INFORMATION
  Report Type: 
  Country: None (occurrence: None)
  Receive Date: 20120224
  Receipt Date: 20120216
  Transmission Date: 20120608
  Serious: Yes (Hospitalization, Other)
  Sender: FDA-Public Use
  Company Number: US-ABBOTT-12P-163-0906463-00

PATIENT
  Age: 68 Year
  Sex: Female

DRUGS (16)
  1. FOLIC ACID [Concomitant]
     Indication: PRODUCT USED FOR UNKNOWN INDICATION
  2. HUMIRA [Suspect]
     Indication: CROHN'S DISEASE
     Dates: start: 20101014, end: 20111001
  3. APRISO [Concomitant]
     Indication: CROHN'S DISEASE
  4. ADVAIR DISKUS 100/50 [Concomitant]
     Indication: ASTHMA
     Dosage: 100/50
  5. ZYRTEC [Concomitant]
     Indication: HYPERSENSITIVITY
  6. LOVASTATIN [Concomitant]
     Indication: BLOOD CHOLESTEROL INCREASED
  7. METHOTREXATE [Concomitant]
     Indication: CROHN'S DISEASE
     Dosage: WEEKLY
     Route: 050
  8. FUROSEMIDE [Concomitant]
     Indication: OEDEMA
  9. COMBIVENT [Concomitant]
     Indication: ASTHMA
  10. LEVOTHYROXINE SODIUM [Concomitant]
     Indication: HYPOTHYROIDISM
  11. PREDNISONE [Concomitant]
     Indication: CROHN'S DISEASE
  12. ESTRACE [Concomitant]
     Indication: HORMONE REPLACEMENT THERAPY
  13. TRAMADOL HCL [Concomitant]
     Indication: PAIN
     Dosage: ER
  14. PANTOPRAZOLE [Concomitant]
     Indication: GASTROOESOPHAGEAL REFLUX DISEASE
  15. AMLODIPINE [Concomitant]
     Indication: HYPERTENSION
  16. METOPROLOL TARTRATE [Concomitant]
     Indication: ARRHYTHMIA

REACTIONS (8)
  - PYREXIA [None]
  - OEDEMA PERIPHERAL [None]
  - DEFAECATION URGENCY [None]
  - ANAEMIA [None]
  - AUTOIMMUNE DISORDER [None]
  - DRUG INEFFECTIVE [None]
  - DIARRHOEA [None]
  - RASH [None]
